FAERS Safety Report 19665672 (Version 2)
Quarter: 2021Q3

REPORT INFORMATION
  Report Type: Report from Study
  Country: CN (occurrence: CN)
  Receive Date: 20210806
  Receipt Date: 20210922
  Transmission Date: 20211014
  Serious: Yes (Hospitalization)
  Sender: FDA-Public Use
  Company Number: CN-JIANGSU HENGRUI MEDICINE CO., LTD.-2114712

PATIENT
  Age: 57 Year
  Sex: Female
  Weight: 54 kg

DRUGS (16)
  1. COMPOUND DEXAMETHASONE ACETATE CREAM [Concomitant]
     Route: 003
     Dates: start: 20210616
  2. VITAMIN B6 [Concomitant]
     Active Substance: PYRIDOXINE HYDROCHLORIDE
     Route: 041
     Dates: start: 20210721
  3. PALONOSETRON HYDROCHLORIDE INJECTION [Concomitant]
     Active Substance: PALONOSETRON HYDROCHLORIDE
     Dates: start: 20210722, end: 20210722
  4. VITAMIN C INJECTION [Concomitant]
     Active Substance: ASCORBIC ACID
     Route: 041
     Dates: start: 20210721
  5. HR?BLTN?III?MBC?C [PYROTINIB/PLACEBO] [Suspect]
     Active Substance: PYROTINIB
     Route: 048
     Dates: start: 20210426, end: 20210722
  6. INVERT SUGAR AND ELECTROLYTES INJECTION [Concomitant]
     Route: 041
     Dates: start: 20210721
  7. POTASSIUM CHLORIDE GRANULES [Concomitant]
     Route: 041
     Dates: start: 20210720, end: 20210723
  8. ONDANSETRON HYDROCHLORIDE TABLETS [Concomitant]
     Active Substance: ONDANSETRON HYDROCHLORIDE
     Route: 048
     Dates: start: 20210519
  9. GLUCOSE AND SODIUM CHLORIDE INJECTION [Concomitant]
     Route: 041
     Dates: start: 20210721
  10. POTASSIUM CHLORIDE INJECTION [Concomitant]
     Active Substance: POTASSIUM CHLORIDE
     Dates: start: 20210720, end: 20210722
  11. LOPERAMIDE HYDROCHLORIDE CAPSULES [Concomitant]
     Route: 048
     Dates: start: 20210702, end: 20210719
  12. BISOPROLOL FUMARATE TABLETS [Concomitant]
     Active Substance: BISOPROLOL FUMARATE
     Route: 048
  13. AMLODIPINE [Concomitant]
     Active Substance: AMLODIPINE BESYLATE
     Route: 048
  14. DOCETAXEL INJECTION USP, 20 MG/1 ML, 80 MG/4 ML, AND 160 MG/8 ML (20 M [Suspect]
     Active Substance: DOCETAXEL
     Indication: BREAST CANCER
     Dates: start: 20210426, end: 20210701
  15. TRASTUZUMAB. [Suspect]
     Active Substance: TRASTUZUMAB
     Route: 041
     Dates: start: 20210426, end: 20210701
  16. ALMAGATE SUSPENSION [Concomitant]
     Route: 048
     Dates: start: 20210722

REACTIONS (1)
  - Hypoalbuminaemia [Recovered/Resolved]

NARRATIVE: CASE EVENT DATE: 20210726
